FAERS Safety Report 11850936 (Version 1)
Quarter: 2015Q4

REPORT INFORMATION
  Report Type: Spontaneous
  Country: US (occurrence: US)
  Receive Date: 20151218
  Receipt Date: 20151218
  Transmission Date: 20160305
  Serious: No
  Sender: FDA-Public Use
  Company Number: US-JNJFOC-20150301023

PATIENT
  Age: 88 Year
  Sex: Female
  Weight: 47.63 kg

DRUGS (7)
  1. WOMENS ROGAINE [Suspect]
     Active Substance: MINOXIDIL
     Indication: ALOPECIA
     Dosage: DROPPER LINE 1 ML
     Route: 061
     Dates: end: 20150311
  2. CRANBERRY TABS [Concomitant]
     Indication: URINARY TRACT INFECTION
     Dosage: 4,200 MG TWICE DAILY ??INTERVAL: 30 YEARS
     Route: 065
  3. OCUVITE (VITAMIN COMBINATIONS) [Concomitant]
     Indication: GLAUCOMA
     Dosage: 50 + TABLET DAILY
  4. MAGNESIUM [Concomitant]
     Active Substance: MAGNESIUM
     Indication: PRODUCT USED FOR UNKNOWN INDICATION
     Dosage: INTERVAL: 6-7 MONTHS
     Route: 065
  5. WOMENS ROGAINE [Suspect]
     Active Substance: MINOXIDIL
     Route: 061
  6. CIPRO [Concomitant]
     Active Substance: CIPROFLOXACIN HYDROCHLORIDE
     Indication: URINARY TRACT INFECTION
     Dosage: INTERVAL : 6 DAYS
  7. VITAMINS NOS [Concomitant]
     Active Substance: VITAMINS
     Indication: ROUTINE HEALTH MAINTENANCE
     Dosage: 1 A DAY INTERVALS: YEARS

REACTIONS (2)
  - Hair texture abnormal [Recovered/Resolved]
  - Product quality issue [Unknown]
